FAERS Safety Report 5583564-4 (Version None)
Quarter: 2007Q4

REPORT INFORMATION
  Report Type: 
  Country: None (occurrence: None)
  Receive Date: 20071231
  Receipt Date: 20071222
  Transmission Date: 20080405
  Serious: Yes (Hospitalization, Other)
  Sender: FDA-Public Use
  Company Number: 2007SP025384

PATIENT
  Sex: Female

DRUGS (8)
  1. PEG-INTRON [Suspect]
     Indication: HEPATITIS C
     Dosage: SC; SC
     Route: 058
     Dates: start: 20060101, end: 20070101
  2. PEG-INTRON [Suspect]
     Indication: HEPATITIS C
     Dosage: SC; SC
     Route: 058
     Dates: start: 20070101
  3. RIBAVIRIN [Suspect]
     Indication: HEPATITIS C
     Dosage: PO; PO
     Route: 048
     Dates: start: 20060101, end: 20070101
  4. RIBAVIRIN [Suspect]
     Indication: HEPATITIS C
     Dosage: PO; PO
     Route: 048
     Dates: start: 20070101, end: 20070101
  5. PROCRIT (CON.) [Concomitant]
  6. METHADONE (CON.) [Concomitant]
  7. XANAX (CON.) [Concomitant]
  8. MUSCLE RELAXER (CON.) [Concomitant]

REACTIONS (9)
  - CERVICAL VERTEBRAL FRACTURE [None]
  - CONVULSION [None]
  - DYSPNOEA [None]
  - FALL [None]
  - FATIGUE [None]
  - HYPERVENTILATION [None]
  - PYREXIA [None]
  - RENAL DISORDER [None]
  - RENAL PAIN [None]
